FAERS Safety Report 6623495-1 (Version None)
Quarter: 2010Q1

REPORT INFORMATION
  Report Type: 
  Country: None (occurrence: None)
  Receive Date: 20100301
  Receipt Date: 20100217
  Transmission Date: 20100710
  Serious: Yes (Hospitalization, Other)
  Sender: FDA-Public Use
  Company Number: US-IGSA-IG620

PATIENT
  Age: 65 Year
  Sex: Female
  Weight: 62 kg

DRUGS (15)
  1. FLEBOGAMMA 5% DIF [Suspect]
     Indication: HYPOGAMMAGLOBULINAEMIA
     Dosage: 20 G, INTRAVENOUSLY
     Route: 042
     Dates: start: 20091222
  2. SPIRIVA [Concomitant]
  3. ADVAIR DISKUS 100/50 [Concomitant]
  4. NITROGLYCERINE PASTE [Concomitant]
  5. COREG [Concomitant]
  6. ACTIVAN [Concomitant]
  7. LORTAB [Concomitant]
  8. ALBUTEROL [Concomitant]
  9. PERCOCET [Concomitant]
  10. MUCINEX [Concomitant]
  11. SODIUM BICARBONATE 650 MG [Concomitant]
  12. FEOSOL 325 MG [Concomitant]
  13. NYSTATIN SWISH AND SWALLOW [Concomitant]
  14. ARTIFICIAL TEARS [Concomitant]
  15. MULTI-VITAMINS [Concomitant]

REACTIONS (9)
  - ANXIETY [None]
  - BLOOD MAGNESIUM DECREASED [None]
  - BLOOD PRESSURE INCREASED [None]
  - HYPERCAPNIA [None]
  - INFUSION RELATED REACTION [None]
  - RALES [None]
  - RESPIRATORY ACIDOSIS [None]
  - RESPIRATORY FAILURE [None]
  - SINUS TACHYCARDIA [None]
